FAERS Safety Report 17185089 (Version 2)
Quarter: 2019Q4

REPORT INFORMATION
  Report Type: Spontaneous
  Country: CN (occurrence: CN)
  Receive Date: 20191220
  Receipt Date: 20191224
  Transmission Date: 20200122
  Serious: Yes (Other)
  Sender: FDA-Public Use
  Company Number: CN-PFIZER INC-2019543910

PATIENT
  Age: 33 Year
  Sex: Male
  Weight: 78 kg

DRUGS (4)
  1. MELPHALAN HYDROCHLORIDE. [Suspect]
     Active Substance: MELPHALAN HYDROCHLORIDE
     Indication: NEOPLASM
     Dosage: 220 MG, 1X/DAY
     Route: 041
     Dates: start: 20190813, end: 20190813
  2. CARMUSTINE OBVIUS [Concomitant]
     Active Substance: CARMUSTINE
     Indication: NEOPLASM
     Dosage: 400 MG, 1X/DAY
     Route: 041
     Dates: start: 20190808, end: 20190808
  3. CYTOSAR [Suspect]
     Active Substance: CYTARABINE
     Indication: NEOPLASM
     Dosage: 0.650 G, 1X/DAY
     Route: 041
     Dates: start: 20190809, end: 20190812
  4. ETOPOSIDE. [Concomitant]
     Active Substance: ETOPOSIDE
     Indication: NEOPLASM
     Dosage: 0.150 G, 1X/DAY
     Route: 041
     Dates: start: 20190809, end: 20190812

REACTIONS (2)
  - Enteritis [Recovering/Resolving]
  - Occult blood positive [Unknown]

NARRATIVE: CASE EVENT DATE: 20190819
